FAERS Safety Report 17895619 (Version 2)
Quarter: 2021Q4

REPORT INFORMATION
  Report Type: Spontaneous
  Country: CA (occurrence: CA)
  Receive Date: 20200615
  Receipt Date: 20211230
  Transmission Date: 20220304
  Serious: Yes (Hospitalization, Other)
  Sender: FDA-Public Use
  Company Number: CA-SA-2020SA151965

PATIENT
  Age: 58 Year
  Sex: Female

DRUGS (21)
  1. ZANTAC [Suspect]
     Active Substance: RANITIDINE HYDROCHLORIDE
     Indication: Product used for unknown indication
  2. MONTELUKAST SODIUM [Suspect]
     Active Substance: MONTELUKAST SODIUM
     Indication: Asthma
     Dosage: 10 MG, QD
  3. ALBUTEROL SULFATE [Suspect]
     Active Substance: ALBUTEROL SULFATE
     Indication: Asthma
     Dosage: 100 UG
  4. ADVAIR HFA [Suspect]
     Active Substance: FLUTICASONE PROPIONATE\SALMETEROL XINAFOATE
     Indication: Asthma
     Dosage: 500 UG, BID
  5. FLUTICASONE PROPIONATE [Suspect]
     Active Substance: FLUTICASONE PROPIONATE
     Indication: Asthma
     Dosage: 500 UG, BID
  6. AMLODIPINE [Concomitant]
     Active Substance: AMLODIPINE BESYLATE
     Indication: Product used for unknown indication
  7. DOCUSATE [Concomitant]
     Active Substance: DOCUSATE
     Indication: Product used for unknown indication
  8. IPRATROPIUM [Concomitant]
     Active Substance: IPRATROPIUM
     Indication: Product used for unknown indication
  9. MAVIK [Concomitant]
     Active Substance: TRANDOLAPRIL
     Indication: Product used for unknown indication
  10. PANTOPRAZOLE [Concomitant]
     Active Substance: PANTOPRAZOLE
     Indication: Product used for unknown indication
  11. ROSUVASTATIN CALCIUM [Concomitant]
     Active Substance: ROSUVASTATIN CALCIUM
     Indication: Product used for unknown indication
  12. SENOKOT [Concomitant]
     Active Substance: SENNOSIDES
     Indication: Product used for unknown indication
  13. RHINOCORT [Concomitant]
     Active Substance: BUDESONIDE
     Indication: Product used for unknown indication
  14. RANITIDINE HYDROCHLORIDE [Concomitant]
     Active Substance: RANITIDINE HYDROCHLORIDE
  15. PROPYLTHIOURACIL [Concomitant]
     Active Substance: PROPYLTHIOURACIL
  16. SERTRALINE [Concomitant]
     Active Substance: SERTRALINE HYDROCHLORIDE
  17. TRAZODONE [Concomitant]
     Active Substance: TRAZODONE HYDROCHLORIDE
  18. ALLOPURINOL [Concomitant]
     Active Substance: ALLOPURINOL
  19. ATROVENT [Concomitant]
     Active Substance: IPRATROPIUM BROMIDE
  20. PANTOPRAZOLE SODIUM [Concomitant]
     Active Substance: PANTOPRAZOLE SODIUM
  21. CROMOLYN [Concomitant]
     Active Substance: CROMOLYN

REACTIONS (20)
  - Asthma [Unknown]
  - Cardiomegaly [Unknown]
  - Gastrooesophageal reflux disease [Unknown]
  - Gout [Unknown]
  - Hypothyroidism [Unknown]
  - Wheezing [Unknown]
  - Chest discomfort [Unknown]
  - Cough [Unknown]
  - Chills [Unknown]
  - Hyperhidrosis [Unknown]
  - Oropharyngeal pain [Unknown]
  - Dysphonia [Unknown]
  - Aphonia [Unknown]
  - Pyrexia [Unknown]
  - Back pain [Unknown]
  - Vertigo [Unknown]
  - Full blood count abnormal [Unknown]
  - Sputum discoloured [Unknown]
  - Cough [Unknown]
  - Therapeutic product effect incomplete [Unknown]
